FAERS Safety Report 8349484-7 (Version None)
Quarter: 2012Q2

REPORT INFORMATION
  Report Type: 
  Country: None (occurrence: None)
  Receive Date: 20120510
  Receipt Date: 20120508
  Transmission Date: 20120825
  Serious: Yes (Hospitalization, Other)
  Sender: FDA-Public Use
  Company Number: DE-SANOFI-AVENTIS-2012SA032288

PATIENT
  Age: 48 Year
  Sex: Female
  Weight: 75 kg

DRUGS (9)
  1. TRAMADOL HYDROCHLORIDE [Concomitant]
     Indication: RHEUMATOID ARTHRITIS
     Dates: start: 20090201
  2. ETANERCEPT [Suspect]
     Indication: RHEUMATOID ARTHRITIS
     Route: 058
     Dates: start: 20101126
  3. SULFASALAZINE [Concomitant]
     Indication: RHEUMATOID ARTHRITIS
  4. ARAVA [Suspect]
     Indication: RHEUMATOID ARTHRITIS
     Route: 048
     Dates: start: 20090701
  5. FOLIC ACID [Concomitant]
     Indication: RHEUMATOID ARTHRITIS
     Dates: start: 20071101
  6. METHOTREXATE [Concomitant]
     Indication: RHEUMATOID ARTHRITIS
     Dates: start: 20071101
  7. HYDROXYCHLOROQUINE SULFATE [Concomitant]
     Indication: RHEUMATOID ARTHRITIS
     Dates: start: 20110501
  8. SYMPAL [Concomitant]
     Indication: RHEUMATOID ARTHRITIS
     Dates: start: 20090201
  9. TILIDINE [Concomitant]
     Indication: RHEUMATOID ARTHRITIS
     Dates: start: 20110501

REACTIONS (3)
  - SUBCUTANEOUS ABSCESS [None]
  - FUNGAL INFECTION [None]
  - HYPERTENSIVE CRISIS [None]
